FAERS Safety Report 10498449 (Version 2)
Quarter: 2014Q4

REPORT INFORMATION
  Report Type: Report from Study
  Country: US (occurrence: US)
  Receive Date: 20141006
  Receipt Date: 20141013
  Transmission Date: 20150528
  Serious: Yes (Death, Hospitalization)
  Sender: FDA-Public Use
  Company Number: US-TEVA-513526USA

PATIENT
  Age: 88 Year
  Sex: Female
  Weight: 62.36 kg

DRUGS (8)
  1. PEGFILGRASTIM [Suspect]
     Active Substance: PEGFILGRASTIM
     Indication: DIFFUSE LARGE B-CELL LYMPHOMA
     Dosage: DATE OF MOST RECENT DOSE 26-SEP-2014
     Route: 065
     Dates: start: 20140725, end: 20140926
  2. LEVOTHYROXINE [Concomitant]
     Active Substance: LEVOTHYROXINE
     Indication: HYPOTHYROIDISM
     Dosage: 75 MICROGRAM DAILY;
     Dates: start: 199401
  3. COUMADIN [Concomitant]
     Active Substance: WARFARIN SODIUM
     Indication: HEART VALVE INCOMPETENCE
     Dosage: 3.5 MILLIGRAM DAILY;
     Dates: start: 201408
  4. DILTIAZEM [Concomitant]
     Active Substance: DILTIAZEM
     Indication: HYPERTENSION
     Dosage: 240 MILLIGRAM DAILY;
     Dates: start: 200907
  5. OFATUMUMAB [Suspect]
     Active Substance: OFATUMUMAB
     Indication: DIFFUSE LARGE B-CELL LYMPHOMA
     Dosage: DATE OF MOST RECENT DOSE 24-SEP-2014
     Route: 065
     Dates: start: 20140723, end: 20140924
  6. LASIX [Concomitant]
     Active Substance: FUROSEMIDE
     Indication: OEDEMA
     Dosage: 40 MILLIGRAM DAILY;
     Dates: start: 200907
  7. TREANDA [Suspect]
     Active Substance: BENDAMUSTINE HYDROCHLORIDE
     Indication: DIFFUSE LARGE B-CELL LYMPHOMA
     Dosage: DATE OF MOST RECENT DOSE 25-SEP-2014
     Route: 065
     Dates: start: 20140723, end: 20140925
  8. METOPROLOL [Concomitant]
     Active Substance: METOPROLOL
     Indication: HYPERTENSION
     Dosage: 50 MILLIGRAM DAILY;
     Dates: start: 201207

REACTIONS (1)
  - Gastrointestinal necrosis [Fatal]

NARRATIVE: CASE EVENT DATE: 20141001
